FAERS Safety Report 4739594-5 (Version None)
Quarter: 2005Q3

REPORT INFORMATION
  Report Type: 
  Country: None (occurrence: None)
  Receive Date: 20050810
  Receipt Date: 20050408
  Transmission Date: 20060218
  Serious: No
  Sender: FDA-Public Use
  Company Number: US-GLAXOSMITHKLINE-A0553375A

PATIENT
  Age: 48 Year
  Sex: Female

DRUGS (4)
  1. PAROXETINE HCL [Suspect]
     Dosage: 10MG PER DAY
     Route: 048
     Dates: start: 20050404
  2. PAXIL [Suspect]
     Dosage: 25MG PER DAY
     Route: 048
  3. PAXIL [Suspect]
     Dosage: 37.5MG PER DAY
     Route: 048
  4. SYNTHROID [Concomitant]

REACTIONS (2)
  - ANXIETY [None]
  - PRURITUS [None]
